FAERS Safety Report 4771574-6 (Version None)
Quarter: 2005Q3

REPORT INFORMATION
  Report Type: 
  Country: None (occurrence: None)
  Receive Date: 20050914
  Receipt Date: 20050914
  Transmission Date: 20060218
  Serious: No
  Sender: FDA-Public Use
  Company Number: None

PATIENT
  Age: 64 Year
  Sex: Male
  Weight: 102.0593 kg

DRUGS (2)
  1. LUPRON [Suspect]
     Indication: PROSTATE CANCER
     Dosage: 30 MG IM ONE DOSE (SEE IMAGE) Q 3D
     Route: 030
     Dates: start: 20050517
  2. EXTERNAL RADIATION THERAPY [Concomitant]

REACTIONS (4)
  - INJECTION SITE ERYTHEMA [None]
  - INJECTION SITE INDURATION [None]
  - INJECTION SITE PAIN [None]
  - INJECTION SITE REACTION [None]
